FAERS Safety Report 5243758-4 (Version None)
Quarter: 2007Q1

REPORT INFORMATION
  Report Type: 
  Country: None (occurrence: None)
  Receive Date: 20070220
  Receipt Date: 20070220
  Transmission Date: 20070707
  Serious: No
  Sender: FDA-Public Use
  Company Number: None

PATIENT
  Age: 19 Year
  Sex: Female
  Weight: 58.9676 kg

DRUGS (1)
  1. MICRONOR [Suspect]
     Indication: CONTRACEPTION
     Dosage: 0.35 MG DAILY PO
     Route: 048
     Dates: start: 20010301, end: 20010301

REACTIONS (4)
  - AGORAPHOBIA [None]
  - GENERALISED ANXIETY DISORDER [None]
  - INSOMNIA [None]
  - PANIC ATTACK [None]
